FAERS Safety Report 6125959-6 (Version None)
Quarter: 2009Q1

REPORT INFORMATION
  Report Type: 
  Country: None (occurrence: None)
  Receive Date: 20090320
  Receipt Date: 20090311
  Transmission Date: 20090719
  Serious: Yes (Other)
  Sender: FDA-Public Use
  Company Number: US-JNJFOC-20090304459

PATIENT
  Age: 29 Year
  Sex: Male

DRUGS (4)
  1. EXTRA STRENGTH TYLENOL [Suspect]
     Indication: DRUG USE FOR UNKNOWN INDICATION
  2. DIMETAPP [Suspect]
     Indication: DRUG USE FOR UNKNOWN INDICATION
  3. ERY-TAB [Suspect]
     Indication: DRUG USE FOR UNKNOWN INDICATION
  4. BENADRYL ALLERGY AND SINUS [Suspect]
     Indication: DRUG USE FOR UNKNOWN INDICATION

REACTIONS (1)
  - FACIAL PALSY [None]
